FAERS Safety Report 8904064 (Version 1)
Quarter: 2012Q4

REPORT INFORMATION
  Report Type: 
  Country: US (occurrence: US)
  Receive Date: 20121113
  Receipt Date: 20121113
  Transmission Date: 20130627
  Serious: Yes (Other)
  Sender: FDA-Public Use
  Company Number: PHEH2012US022298

PATIENT
  Age: 8 Year
  Sex: Female

DRUGS (1)
  1. EXJADE [Suspect]
     Indication: IRON OVERLOAD
     Dosage: 750 mg, QD
     Route: 048
     Dates: end: 20121105

REACTIONS (2)
  - Hepatomegaly [Not Recovered/Not Resolved]
  - Liver disorder [Not Recovered/Not Resolved]
